FAERS Safety Report 4832507-7 (Version None)
Quarter: 2005Q4

REPORT INFORMATION
  Report Type: 
  Country: None (occurrence: None)
  Receive Date: 20051117
  Receipt Date: 20051108
  Transmission Date: 20060501
  Serious: Yes (Death)
  Sender: FDA-Public Use
  Company Number: S05-USA-04913-01

PATIENT
  Age: 83 Year
  Sex: Male

DRUGS (4)
  1. NAMENDA [Suspect]
     Indication: DEMENTIA
     Dosage: 5 MG ONCE PO
     Route: 048
     Dates: start: 20051101, end: 20051101
  2. REMINYL [Concomitant]
  3. BLOOD PRESSURE MEDICATION (NOS) [Concomitant]
  4. DIABETES MEDICATION (NOS) [Concomitant]

REACTIONS (5)
  - ARRHYTHMIA [None]
  - CARDIAC ARREST [None]
  - FALL [None]
  - HYPOXIA [None]
  - LOSS OF CONSCIOUSNESS [None]
